FAERS Safety Report 26158730 (Version 1)
Quarter: 2025Q4

REPORT INFORMATION
  Report Type: Spontaneous
  Country: GB (occurrence: GB)
  Receive Date: 20251215
  Receipt Date: 20251215
  Transmission Date: 20260117
  Serious: Yes (Other)
  Sender: IPSEN BIOPHARMACEUTICALS, INC.
  Company Number: GB-IPSEN Group, Research and Development-2025-30686

PATIENT
  Age: 71 Year
  Sex: Male

DRUGS (2)
  1. ELAFIBRANOR [Suspect]
     Active Substance: ELAFIBRANOR
     Indication: Product used for unknown indication
  2. ELAFIBRANOR [Suspect]
     Active Substance: ELAFIBRANOR
     Dosage: CONTINUED

REACTIONS (1)
  - Ascites [Unknown]
